FAERS Safety Report 6165416-4 (Version None)
Quarter: 2009Q2

REPORT INFORMATION
  Report Type: 
  Country: None (occurrence: None)
  Receive Date: 20090423
  Receipt Date: 20090415
  Transmission Date: 20091009
  Serious: Yes (Death)
  Sender: FDA-Public Use
  Company Number: IE-WATSON-2009-02566

PATIENT
  Age: 72 Year
  Sex: Female

DRUGS (4)
  1. CYCLOSPORINE [Suspect]
     Indication: PUSTULAR PSORIASIS
     Dosage: 5 MG/KG DAILY
  2. ADALIMUMAB [Suspect]
     Indication: PUSTULAR PSORIASIS
     Dosage: 40 MG, 1/WEEK
  3. INFLIXIMAB [Suspect]
     Indication: PUSTULAR PSORIASIS
     Route: 065
  4. ETANERCEPT [Suspect]
     Indication: PUSTULAR PSORIASIS
     Route: 065

REACTIONS (1)
  - LUNG CANCER METASTATIC [None]
